FAERS Safety Report 24183849 (Version 2)
Quarter: 2024Q3

REPORT INFORMATION
  Report Type: Spontaneous
  Country: US (occurrence: US)
  Receive Date: 20240807
  Receipt Date: 20240917
  Transmission Date: 20241017
  Serious: Yes (Hospitalization, Other)
  Sender: HIKMA
  Company Number: HIKM2406413

PATIENT
  Age: 59 Year
  Sex: Female

DRUGS (3)
  1. AMOXICILLIN [Suspect]
     Active Substance: AMOXICILLIN
     Indication: Tooth infection
     Dosage: ONE CAPSULE
     Route: 048
     Dates: start: 20240724, end: 20240724
  2. BALANCE OF NATURE FRUITS [Concomitant]
     Indication: Product used for unknown indication
     Dosage: UNK
     Route: 065
  3. CALCIUM [Concomitant]
     Active Substance: CALCIUM
     Indication: Product used for unknown indication
     Dosage: UNK
     Route: 065

REACTIONS (12)
  - Drug hypersensitivity [Recovered/Resolved]
  - Ear discomfort [Recovered/Resolved]
  - Feeling hot [Recovered/Resolved]
  - Burning sensation [Recovered/Resolved]
  - Pruritus [Recovered/Resolved]
  - Peripheral swelling [Recovered/Resolved]
  - Swollen tongue [Recovered/Resolved]
  - Pharyngeal swelling [Recovered/Resolved]
  - Chills [Recovered/Resolved]
  - Erythema [Recovered/Resolved]
  - Blood pressure abnormal [Recovered/Resolved]
  - Off label use [Unknown]

NARRATIVE: CASE EVENT DATE: 20240724
